FAERS Safety Report 7022619-4 (Version None)
Quarter: 2010Q3

REPORT INFORMATION
  Report Type: 
  Country: None (occurrence: None)
  Receive Date: 20100930
  Receipt Date: 20100923
  Transmission Date: 20110219
  Serious: Yes (Hospitalization)
  Sender: FDA-Public Use
  Company Number: US-PERRIGO-10US012907

PATIENT
  Sex: Male
  Weight: 122.45 kg

DRUGS (2)
  1. NICOTINE 4 MG MINT 873 [Suspect]
     Indication: SMOKING CESSATION THERAPY
     Dosage: 4 MG PER HOUR WHILE AWAKE PER DAY
     Route: 002
     Dates: start: 20080101
  2. ANTIHYPERTENSIVES [Concomitant]
     Indication: HYPERTENSION
     Dosage: UNKNOWN MG, DAILY

REACTIONS (7)
  - ASTHMA [None]
  - BRONCHIAL HYPERREACTIVITY [None]
  - COUGH [None]
  - INCORRECT DRUG ADMINISTRATION DURATION [None]
  - INCORRECT ROUTE OF DRUG ADMINISTRATION [None]
  - INCREASED BRONCHIAL SECRETION [None]
  - OXYGEN SATURATION DECREASED [None]
